FAERS Safety Report 9744394 (Version 2)
Quarter: 2014Q1

REPORT INFORMATION
  Report Type: Spontaneous
  Country: US (occurrence: US)
  Receive Date: 20131210
  Receipt Date: 20140205
  Transmission Date: 20141002
  Serious: Yes (Death)
  Sender: FDA-Public Use
  Company Number: US-CELGENEUS-163-21880-13120283

PATIENT
  Sex: Female
  Weight: 106.69 kg

DRUGS (14)
  1. REVLIMID [Suspect]
     Indication: MYELODYSPLASTIC SYNDROME
     Dosage: 5 MILLIGRAM
     Route: 048
     Dates: start: 20130807
  2. REVLIMID [Suspect]
     Dosage: 2.5 MILLIGRAM
     Route: 048
     Dates: start: 201308, end: 201310
  3. PRAVASTATIN [Concomitant]
     Indication: HYPERLIPIDAEMIA
     Dosage: 10 MILLIGRAM
     Route: 048
  4. CARDIZEM [Concomitant]
     Indication: HYPERTENSION
     Dosage: 120 MILLIGRAM
     Route: 048
  5. RANEXA [Concomitant]
     Indication: ANGINA PECTORIS
     Dosage: 1000 MILLIGRAM
     Route: 048
  6. ABILIFY [Concomitant]
     Indication: DEPRESSION
     Dosage: 30 MILLIGRAM
     Route: 048
  7. AMLODIPINE [Concomitant]
     Indication: HYPERTENSION
     Dosage: 10 MILLIGRAM
     Route: 048
  8. BENAZEPRIL [Concomitant]
     Indication: HYPERTENSION
     Dosage: 10 MILLIGRAM
     Route: 048
  9. BENZTROPINE [Concomitant]
     Indication: PARKINSON^S DISEASE
     Dosage: 2 MILLIGRAM
     Route: 048
  10. BUMETANIDE [Concomitant]
     Indication: RENAL FAILURE
     Dosage: 2 MILLIGRAM
     Route: 048
  11. BUSPIRONE [Concomitant]
     Indication: ANXIETY
     Dosage: 5 MILLIGRAM
     Route: 048
  12. LANTUS [Concomitant]
     Indication: PRODUCT USED FOR UNKNOWN INDICATION
     Route: 065
  13. INSULIN [Concomitant]
     Indication: PRODUCT USED FOR UNKNOWN INDICATION
     Route: 065
  14. LEVOTHYROXINE [Concomitant]
     Indication: PRODUCT USED FOR UNKNOWN INDICATION
     Route: 065

REACTIONS (1)
  - Urosepsis [Fatal]
